FAERS Safety Report 17033071 (Version 1)
Quarter: 2019Q4

REPORT INFORMATION
  Report Type: Spontaneous
  Country: FR (occurrence: FR)
  Receive Date: 20191114
  Receipt Date: 20191114
  Transmission Date: 20200122
  Serious: Yes (Hospitalization)
  Sender: FDA-Public Use
  Company Number: FR-009507513-1911FRA002176

PATIENT
  Age: 62 Year
  Sex: Male
  Weight: 57.8 kg

DRUGS (15)
  1. DUPHALAC [Concomitant]
     Active Substance: LACTULOSE
  2. MODIGRAF [Concomitant]
     Active Substance: TACROLIMUS
  3. PHYTONADIONE. [Concomitant]
     Active Substance: PHYTONADIONE
  4. NEORECORMON [Concomitant]
     Active Substance: ERYTHROPOIETIN
  5. TIXTAR [Concomitant]
     Active Substance: RIFAXIMIN
  6. VALGANCICLOVIR HYDROCHLORIDE. [Concomitant]
     Active Substance: VALGANCICLOVIR HYDROCHLORIDE
  7. ABASAGLAR [Concomitant]
     Active Substance: INSULIN GLARGINE
     Dosage: STRENGTH: 100 UNITS/MILLILITER
  8. ALBUMIN HUMAN [Concomitant]
     Active Substance: ALBUMIN HUMAN
  9. FOLIC ACID. [Concomitant]
     Active Substance: FOLIC ACID
  10. AZATHIOPRINE. [Concomitant]
     Active Substance: AZATHIOPRINE
  11. RIBAVIRIN. [Suspect]
     Active Substance: RIBAVIRIN
     Indication: HEPATITIS E
     Dosage: 1000 MILLIGRAM, QD
     Route: 048
     Dates: start: 20180802, end: 20181019
  12. CLOXACILLIN [Concomitant]
     Active Substance: CLOXACILLIN
  13. TERLIPRESSIN ACETATE [Concomitant]
     Active Substance: TERLIPRESSIN
  14. NOVORAPID [Concomitant]
     Active Substance: INSULIN ASPART
  15. ZITHROMAX [Concomitant]
     Active Substance: AZITHROMYCIN DIHYDRATE

REACTIONS (2)
  - Liver disorder [Not Recovered/Not Resolved]
  - Cytopenia [Not Recovered/Not Resolved]

NARRATIVE: CASE EVENT DATE: 201810
